FAERS Safety Report 4766359-0 (Version None)
Quarter: 2005Q3

REPORT INFORMATION
  Report Type: 
  Country: None (occurrence: None)
  Receive Date: 20050912
  Receipt Date: 20050828
  Transmission Date: 20060218
  Serious: Yes (Death)
  Sender: FDA-Public Use
  Company Number: IL-NOVOPROD-246556

PATIENT
  Age: 23 Year
  Sex: Male

DRUGS (2)
  1. NORADRENALINE [Concomitant]
     Dates: start: 20050826, end: 20050826
  2. NOVOSEVEN [Suspect]
     Indication: HAEMORRHAGE
     Dosage: 7.2 MG, BID
     Dates: start: 20050826, end: 20050826

REACTIONS (2)
  - CONCOMITANT DISEASE PROGRESSION [None]
  - SHOCK HAEMORRHAGIC [None]
